FAERS Safety Report 14308803 (Version 1)
Quarter: 2017Q4

REPORT INFORMATION
  Report Type: Spontaneous
  Country: US (occurrence: US)
  Receive Date: 20171220
  Receipt Date: 20171220
  Transmission Date: 20180321
  Serious: Yes (Death)
  Sender: FDA-Public Use
  Company Number: US-ORPHAN EUROPE-2037478

PATIENT
  Age: 26 Year
  Sex: Female

DRUGS (1)
  1. CARBAGLU [Suspect]
     Active Substance: CARGLUMIC ACID
     Indication: HYPERAMMONAEMIA
     Dates: start: 20170817

REACTIONS (1)
  - Death [Fatal]
